FAERS Safety Report 14491134 (Version 2)
Quarter: 2018Q1

REPORT INFORMATION
  Report Type: Spontaneous
  Country: DE (occurrence: DE)
  Receive Date: 20180206
  Receipt Date: 20180330
  Transmission Date: 20180509
  Serious: Yes (Other)
  Sender: FDA-Public Use
  Company Number: DE-AUROBINDO-AUR-APL-2018-004577

PATIENT
  Age: 73 Year
  Sex: Male
  Weight: 70.5 kg

DRUGS (17)
  1. TEA, GREEN [Concomitant]
     Active Substance: GREEN TEA LEAF
     Dosage: 4 DF, QD
     Route: 065
  2. DEKRISTOL [Concomitant]
     Active Substance: CHOLECALCIFEROL
     Indication: VITAMIN D DEFICIENCY
     Dosage: 20000 IU, Q2WK
     Route: 048
     Dates: start: 20151122
  3. ALLOPURINOL. [Concomitant]
     Active Substance: ALLOPURINOL
     Indication: BLOOD URIC ACID INCREASED
  4. MAGNESIUM [Concomitant]
     Active Substance: MAGNESIUM
     Indication: MAGNESIUM DEFICIENCY
     Dosage: 300 MG, BID
     Route: 048
     Dates: start: 20170101
  5. ALLOPURINOL. [Concomitant]
     Active Substance: ALLOPURINOL
     Indication: PRODUCT USED FOR UNKNOWN INDICATION
     Dosage: 100 MG, QD
     Route: 048
     Dates: start: 20151118
  6. MEGLUMINA [Suspect]
     Active Substance: MEGLUMINE
     Indication: AMYLOIDOSIS
     Dosage: DOSE: 20 OR 80 MG (1XDAY) ()
     Route: 065
     Dates: start: 20170704
  7. POTASSIUM CHLORIDE. [Concomitant]
     Active Substance: POTASSIUM CHLORIDE
     Indication: HYPOKALAEMIA
     Dosage: 1200 MG MILLIGRAM(S) EVERY 8 HOUR
     Route: 048
     Dates: start: 20161129
  8. TEA, GREEN [Concomitant]
     Active Substance: GREEN TEA LEAF
     Indication: AMYLOIDOSIS
     Dosage: 4 DF, QD
  9. BISOPROLOL [Concomitant]
     Active Substance: BISOPROLOL
     Indication: HYPERTENSION
     Dosage: 7.5 MG, QD
     Route: 048
     Dates: start: 20160616
  10. CAMELLIA SINENSIS [Concomitant]
     Active Substance: GREEN TEA LEAF
     Indication: AMYLOIDOSIS
     Dosage: DAILY DOSE: 4 DF DOSAGE FORM EVERY DAY
     Route: 048
  11. ASPIRIN. [Interacting]
     Active Substance: ASPIRIN
     Indication: CORONARY ARTERY DISEASE
     Dosage: 100 MG, QD
     Route: 048
     Dates: start: 20160613, end: 20170719
  12. SPIRONOLACTONE. [Concomitant]
     Active Substance: SPIRONOLACTONE
     Indication: OEDEMA
     Dosage: 50 MG, BID
     Route: 065
     Dates: start: 20161129
  13. CLOPIDOGREL [Suspect]
     Active Substance: CLOPIDOGREL BISULFATE
     Indication: CORONARY ARTERY DISEASE
     Dosage: 75 MG, QD
     Route: 048
     Dates: start: 20160613, end: 20170719
  14. DABIGATRAN [Interacting]
     Active Substance: DABIGATRAN
     Indication: ATRIAL FIBRILLATION
     Dosage: 110 MG, BID
     Route: 048
     Dates: start: 201701
  15. PRADAXA [Interacting]
     Active Substance: DABIGATRAN ETEXILATE MESYLATE
     Indication: ATRIAL FIBRILLATION
     Dosage: 110 MG, BID
     Route: 048
     Dates: start: 201701
  16. TEA, GREEN [Concomitant]
     Active Substance: GREEN TEA LEAF
     Dosage: 4 DF, QD
  17. TORASEMID [Concomitant]
     Active Substance: TORSEMIDE
     Indication: OEDEMA
     Dosage: 10 MG, BID
     Route: 048
     Dates: start: 201701

REACTIONS (4)
  - Bleeding time prolonged [Recovered/Resolved]
  - Drug administration error [Unknown]
  - Labelled drug-drug interaction medication error [Unknown]
  - Haemorrhagic diathesis [Recovered/Resolved]

NARRATIVE: CASE EVENT DATE: 20170717
